FAERS Safety Report 8207641-4 (Version None)
Quarter: 2012Q1

REPORT INFORMATION
  Report Type: 
  Country: None (occurrence: None)
  Receive Date: 20120314
  Receipt Date: 20120314
  Transmission Date: 20120608
  Serious: No
  Sender: FDA-Public Use
  Company Number: None

PATIENT
  Age: 47 Year
  Sex: Female
  Weight: 99.79 kg

DRUGS (1)
  1. LEVOFLOXACIN [Suspect]
     Indication: BRONCHITIS
     Dosage: 500 MG TABLET
     Dates: start: 20111206, end: 20111213

REACTIONS (11)
  - TREMOR [None]
  - PAIN [None]
  - DIZZINESS [None]
  - GAIT DISTURBANCE [None]
  - ASTHENIA [None]
  - PHARYNGEAL OEDEMA [None]
  - STUPOR [None]
  - SPEECH DISORDER [None]
  - SWELLING [None]
  - PRODUCT SUBSTITUTION ISSUE [None]
  - SWOLLEN TONGUE [None]
